FAERS Safety Report 5740191-3 (Version None)
Quarter: 2008Q2

REPORT INFORMATION
  Report Type: 
  Country: None (occurrence: None)
  Receive Date: 20080516
  Receipt Date: 20080507
  Transmission Date: 20081010
  Serious: Yes (Other)
  Sender: FDA-Public Use
  Company Number: US-ROCHE-563152

PATIENT
  Sex: Male

DRUGS (2)
  1. ISOTRETINOIN [Suspect]
     Indication: DRUG USE FOR UNKNOWN INDICATION
     Dosage: PATIENT WAS DISPENSED ACCUTANE 40 MG CAPSULES ON 5/5/2008
     Route: 065
  2. ASPIRIN [Concomitant]
     Dosage: TOOK 500 ASPIRIN

REACTIONS (1)
  - SUICIDAL IDEATION [None]
